FAERS Safety Report 17051950 (Version 4)
Quarter: 2019Q4

REPORT INFORMATION
  Report Type: Spontaneous
  Country: DE (occurrence: DE)
  Receive Date: 20191120
  Receipt Date: 20191220
  Transmission Date: 20200122
  Serious: Yes (Hospitalization, Other)
  Sender: FDA-Public Use
  Company Number: DE-AUROBINDO-AUR-APL-2019-059133

PATIENT
  Age: 32 Year
  Sex: Male
  Weight: 116.5 kg

DRUGS (25)
  1. LITHIUM CARBONATE. [Suspect]
     Active Substance: LITHIUM CARBONATE
     Dosage: 900 MILLIGRAM, ONCE A DAY
     Route: 048
     Dates: start: 20160731, end: 20160828
  2. SIRDALUD [Suspect]
     Active Substance: TIZANIDINE
     Dosage: 12 MILLIGRAM, ONCE A DAY
     Route: 048
     Dates: start: 201605
  3. DOXEPIN [Suspect]
     Active Substance: DOXEPIN
     Dosage: UNK (DOSE BETWEEN 25-100 MG PER DAY)
     Route: 048
     Dates: start: 20160725, end: 20160802
  4. BUPROPION. [Concomitant]
     Active Substance: BUPROPION
     Indication: PRODUCT USED FOR UNKNOWN INDICATION
     Dosage: UNK
     Route: 065
  5. LITHIUM CARBONATE. [Suspect]
     Active Substance: LITHIUM CARBONATE
     Indication: PRODUCT USED FOR UNKNOWN INDICATION
     Dosage: 900 MILLIGRAM, ONCE A DAY
     Route: 065
  6. VENLAFAXINE [Suspect]
     Active Substance: VENLAFAXINE HYDROCHLORIDE
     Indication: PRODUCT USED FOR UNKNOWN INDICATION
     Dosage: UNK
     Route: 050
     Dates: start: 201706
  7. PREGABALIN. [Suspect]
     Active Substance: PREGABALIN
     Indication: PRODUCT USED FOR UNKNOWN INDICATION
     Dosage: 300 MILLIGRAM, ONCE A DAY
     Route: 065
  8. PREGABALIN. [Suspect]
     Active Substance: PREGABALIN
     Dosage: 300 MILLIGRAM, ONCE A DAY
     Route: 065
     Dates: start: 2014, end: 20160829
  9. LITHIUM CARBONATE. [Suspect]
     Active Substance: LITHIUM CARBONATE
     Dosage: 1125 MILLIGRAM, ONCE A DAY
     Route: 065
     Dates: start: 201601, end: 201608
  10. LITHIUM CARBONATE. [Suspect]
     Active Substance: LITHIUM CARBONATE
     Dosage: 900 MILLIGRAM, ONCE A DAY
     Route: 065
     Dates: start: 201706, end: 20171123
  11. LITHIUM CARBONATE. [Suspect]
     Active Substance: LITHIUM CARBONATE
     Dosage: UNK
     Route: 065
     Dates: start: 201706
  12. DOXEPIN [Suspect]
     Active Substance: DOXEPIN
     Dosage: 100 MILLIGRAM, ONCE A DAY
     Route: 065
     Dates: start: 20160803, end: 20160829
  13. DOXEPIN [Suspect]
     Active Substance: DOXEPIN
     Dosage: 50 MILLIGRAM, ONCE A DAY
     Route: 048
     Dates: start: 20160830, end: 20160831
  14. SIRDALUD [Suspect]
     Active Substance: TIZANIDINE
     Indication: MUSCLE RELAXANT THERAPY
     Dosage: 12 MILLIGRAM, ONCE A DAY
     Route: 065
  15. SIRDALUD [Suspect]
     Active Substance: TIZANIDINE
     Dosage: UNK (DOSE TAPER FROM 12 TO 5 MG)
     Route: 048
     Dates: start: 2016, end: 20160829
  16. SIRDALUD [Suspect]
     Active Substance: TIZANIDINE
     Dosage: UNK (DOSE TAPER FROM 5 MG TO 0)
     Route: 048
     Dates: start: 20160830, end: 20160906
  17. DOXEPIN [Suspect]
     Active Substance: DOXEPIN
     Indication: ANTIDEPRESSANT THERAPY
     Dosage: 100 MILLIGRAM, ONCE A DAY
     Route: 065
  18. DOXEPIN [Suspect]
     Active Substance: DOXEPIN
     Dosage: 52.5 MILLIGRAM, ONCE A DAY
     Route: 065
     Dates: start: 2017
  19. OMEPRAZOLE. [Concomitant]
     Active Substance: OMEPRAZOLE
     Dosage: 20 MILLIGRAM, ONCE A DAY
     Route: 065
     Dates: start: 20171110, end: 20171121
  20. VITAMIN D [Concomitant]
     Active Substance: VITAMIN D NOS
     Indication: VITAMIN SUPPLEMENTATION
     Dosage: 500 INTERNATIONAL UNIT, ONCE A DAY
     Route: 065
  21. LITHIUM CARBONATE. [Suspect]
     Active Substance: LITHIUM CARBONATE
     Dosage: 1125 MILLIGRAM, ONCE A DAY
     Route: 065
     Dates: start: 201511, end: 20160730
  22. OMEPRAZOLE. [Concomitant]
     Active Substance: OMEPRAZOLE
     Indication: GASTROINTESTINAL DISORDER
     Dosage: 40 MILLIGRAM, ONCE A DAY
     Route: 065
  23. VENLAFAXINE [Concomitant]
     Active Substance: VENLAFAXINE HYDROCHLORIDE
     Indication: PRODUCT USED FOR UNKNOWN INDICATION
     Dosage: UNK
     Route: 065
     Dates: start: 201706
  24. PREGABALIN. [Suspect]
     Active Substance: PREGABALIN
     Dosage: 175 MILLIGRAM, ONCE A DAY
     Route: 048
     Dates: start: 20160731, end: 20160828
  25. PREGABALIN. [Suspect]
     Active Substance: PREGABALIN
     Dosage: 300 MILLIGRAM, ONCE A DAY
     Route: 065
     Dates: start: 201706

REACTIONS (16)
  - Dyspnoea [Recovered/Resolved]
  - Proteinuria [Recovered/Resolved]
  - Disease recurrence [Recovered/Resolved]
  - Kidney enlargement [Unknown]
  - Weight increased [Unknown]
  - Psychotic disorder [Unknown]
  - Nephrotic syndrome [Recovered/Resolved]
  - Oedema [Recovered/Resolved]
  - Hypoalbuminaemia [Recovered/Resolved]
  - Albuminuria [Recovered/Resolved]
  - Drug ineffective [Unknown]
  - Pain [Unknown]
  - Persistent depressive disorder [Unknown]
  - Pleural effusion [Recovered/Resolved]
  - Haematuria [Recovered/Resolved]
  - Protein S decreased [Recovered/Resolved]

NARRATIVE: CASE EVENT DATE: 2016
